FAERS Safety Report 13981669 (Version 1)
Quarter: 2017Q3

REPORT INFORMATION
  Report Type: Spontaneous
  Country: US (occurrence: US)
  Receive Date: 20170918
  Receipt Date: 20170918
  Transmission Date: 20171128
  Serious: No
  Sender: FDA-Public Use
  Company Number: US-BION-005804

PATIENT
  Age: 51 Year
  Sex: Female
  Weight: 99.79 kg

DRUGS (1)
  1. ZYRTEC [Suspect]
     Active Substance: CETIRIZINE HYDROCHLORIDE
     Indication: URTICARIA
     Route: 048
     Dates: start: 201608

REACTIONS (2)
  - Incorrect dose administered [Not Recovered/Not Resolved]
  - Drug prescribing error [Not Recovered/Not Resolved]
